FAERS Safety Report 4728826-5 (Version None)
Quarter: 2005Q3

REPORT INFORMATION
  Report Type: 
  Country: None (occurrence: None)
  Receive Date: 20050729
  Receipt Date: 20050510
  Transmission Date: 20060218
  Serious: Yes (Hospitalization)
  Sender: FDA-Public Use
  Company Number: JP-ROCHE-404708

PATIENT
  Age: 56 Year
  Sex: Female

DRUGS (2)
  1. PEG-INTRON [Suspect]
     Dosage: IT WAS INTENDED THAT TREATMENT WITH PEG-INTERFERON ALFA 2A WOULD CONTINUE AS NORMAL WITH THE NEXT D+
     Route: 058
     Dates: start: 20040212, end: 20041104
  2. PEG-INTRON [Suspect]
     Route: 058
     Dates: start: 20041118, end: 20050113

REACTIONS (6)
  - PLATELET COUNT DECREASED [None]
  - PLEURISY [None]
  - PNEUMONIA [None]
  - STREPTOCOCCAL INFECTION [None]
  - URTICARIA [None]
  - WHITE BLOOD CELL COUNT DECREASED [None]
